FAERS Safety Report 5236610-1 (Version None)
Quarter: 2007Q1

REPORT INFORMATION
  Report Type: 
  Country: None (occurrence: None)
  Receive Date: 20070208
  Receipt Date: 20070201
  Transmission Date: 20070707
  Serious: Yes (Other)
  Sender: FDA-Public Use
  Company Number: 235950

PATIENT
  Age: 59 Year
  Sex: Male

DRUGS (1)
  1. XOLAIR [Suspect]
     Indication: ASTHMA
     Dosage: 225 MG
     Dates: start: 20060101

REACTIONS (7)
  - CHEST PAIN [None]
  - CONJUNCTIVITIS [None]
  - FLUSHING [None]
  - HYPERHIDROSIS [None]
  - PRURITUS [None]
  - REFUSAL OF TREATMENT BY PATIENT [None]
  - RHINORRHOEA [None]
